FAERS Safety Report 10431058 (Version 1)
Quarter: 2014Q3

REPORT INFORMATION
  Report Type: Spontaneous
  Country: US (occurrence: US)
  Receive Date: 20140904
  Receipt Date: 20140904
  Transmission Date: 20150326
  Serious: Yes (Other)
  Sender: FDA-Public Use
  Company Number: US-TEVA-506818USA

PATIENT
  Age: 41 Year
  Sex: Female
  Weight: 47.67 kg

DRUGS (1)
  1. PARAGARD T380A [Suspect]
     Active Substance: COPPER
     Indication: CONTRACEPTION
     Route: 015
     Dates: start: 20130711

REACTIONS (4)
  - Vaginal haemorrhage [Unknown]
  - Uterine polyp [Not Recovered/Not Resolved]
  - Uterine leiomyoma [Not Recovered/Not Resolved]
  - Ovarian cyst [Not Recovered/Not Resolved]

NARRATIVE: CASE EVENT DATE: 20140730
